FAERS Safety Report 14280617 (Version 2)
Quarter: 2024Q4

REPORT INFORMATION
  Report Type: Spontaneous
  Country: US (occurrence: US)
  Receive Date: 20171213
  Receipt Date: 20241106
  Transmission Date: 20250114
  Serious: Yes (Life-Threatening, Other)
  Sender: MACLEODS
  Company Number: None

PATIENT

DRUGS (1)
  1. LEVOFLOXACIN [Suspect]
     Active Substance: LEVOFLOXACIN
     Indication: Product used for unknown indication
     Dosage: 500 MG, QD (DAILY)
     Route: 065

REACTIONS (6)
  - Eosinophilic pneumonia acute [Recovering/Resolving]
  - Dyspnoea exertional [Recovering/Resolving]
  - Hypoxia [Recovering/Resolving]
  - Leukocytosis [Recovering/Resolving]
  - Lung infiltration [Recovering/Resolving]
  - Pyrexia [Recovering/Resolving]
